FAERS Safety Report 7558147-7 (Version None)
Quarter: 2011Q2

REPORT INFORMATION
  Report Type: 
  Country: None (occurrence: None)
  Receive Date: 20110620
  Receipt Date: 20110608
  Transmission Date: 20111010
  Serious: Yes (Hospitalization, Other)
  Sender: FDA-Public Use
  Company Number: JP-CELGENEUS-087-21880-11033369

PATIENT
  Sex: Female

DRUGS (14)
  1. ALDACTONE [Concomitant]
     Indication: ILL-DEFINED DISORDER
     Dosage: 50 MILLIGRAM
     Route: 048
     Dates: start: 20100428
  2. REVLIMID [Suspect]
     Dosage: 5 MILLIGRAM
     Route: 048
     Dates: start: 20110411, end: 20110412
  3. DEXAMETHASONE [Suspect]
     Indication: MULTIPLE MYELOMA
     Dosage: 40 MILLIGRAM
     Route: 048
     Dates: start: 20110316, end: 20110316
  4. DECADRON [Concomitant]
     Dosage: 33 MILLIGRAM
     Route: 041
     Dates: start: 20110411, end: 20110414
  5. LASIX [Concomitant]
     Indication: ILL-DEFINED DISORDER
     Dosage: 20 MILLIGRAM
     Route: 048
     Dates: start: 20100428
  6. LANSOPRAZOLE [Concomitant]
     Indication: PROPHYLAXIS
     Dosage: 30 MILLIGRAM
     Route: 048
     Dates: start: 20100428
  7. ASPIRIN [Concomitant]
     Indication: PROPHYLAXIS
     Dosage: 100 MILLIGRAM
     Route: 048
     Dates: start: 20100428
  8. GULUCOLIN S [Concomitant]
     Dosage: 20 MILLILITER
     Route: 041
  9. REVLIMID [Suspect]
     Indication: MULTIPLE MYELOMA
     Dosage: 15 MILLIGRAM
     Route: 048
     Dates: start: 20110316, end: 20110328
  10. REVLIMID [Suspect]
     Dosage: 5 MILLIGRAM
     Route: 048
     Dates: start: 20110414, end: 20110414
  11. URSO 250 [Concomitant]
     Dosage: 600 MILLIGRAM
     Route: 048
     Dates: start: 20100428
  12. DECADRON [Concomitant]
     Indication: MULTIPLE MYELOMA
     Dosage: 33 MILLIGRAM
     Route: 041
     Dates: start: 20110317, end: 20110319
  13. DECADRON [Concomitant]
     Dosage: 33 MILLIGRAM
     Route: 041
     Dates: start: 20110324, end: 20110327
  14. LOSARTAN POTASSIUM [Concomitant]
     Indication: HYPERTENSION
     Dosage: 25 MILLIGRAM
     Route: 048
     Dates: start: 20100428

REACTIONS (4)
  - THROMBOCYTOPENIA [None]
  - ANAEMIA [None]
  - SOMNOLENCE [None]
  - NEUTROPENIA [None]
